FAERS Safety Report 24360483 (Version 4)
Quarter: 2024Q4

REPORT INFORMATION
  Report Type: Spontaneous
  Country: US (occurrence: US)
  Receive Date: 20240925
  Receipt Date: 20241224
  Transmission Date: 20250114
  Serious: No
  Sender: CSL BEHRING
  Company Number: US-BEH-2024178931

PATIENT
  Age: 30 Year
  Sex: Female
  Weight: 86.2 kg

DRUGS (7)
  1. HIZENTRA [Suspect]
     Active Substance: HUMAN IMMUNOGLOBULIN G
     Indication: Hypergammaglobulinaemia
     Dosage: 4 G, QOW
     Route: 058
     Dates: start: 202407
  2. HIZENTRA [Suspect]
     Active Substance: HUMAN IMMUNOGLOBULIN G
     Dosage: 2 G, QOW
     Route: 058
     Dates: start: 202407
  3. HIZENTRA [Suspect]
     Active Substance: HUMAN IMMUNOGLOBULIN G
     Dosage: 1 G, QOW
     Route: 058
     Dates: start: 202407
  4. HIZENTRA [Suspect]
     Active Substance: HUMAN IMMUNOGLOBULIN G
     Dosage: 10 G, QOW
     Route: 058
     Dates: start: 202407
  5. HIZENTRA [Suspect]
     Active Substance: HUMAN IMMUNOGLOBULIN G
     Dosage: 17 G, QOW
     Route: 058
     Dates: start: 20240910
  6. DIPHENHYDRAMINE [Concomitant]
     Active Substance: DIPHENHYDRAMINE
     Indication: Hypersensitivity
  7. BENADRYL [Concomitant]
     Active Substance: DIPHENHYDRAMINE HYDROCHLORIDE
     Dosage: UNK

REACTIONS (11)
  - Hypersensitivity [Recovering/Resolving]
  - Injection site reaction [Recovering/Resolving]
  - Injection site pain [Unknown]
  - Pruritus [Unknown]
  - Infusion site urticaria [Unknown]
  - Dizziness [Unknown]
  - Chest pain [Unknown]
  - Chest discomfort [Unknown]
  - Pain in extremity [Unknown]
  - Hypersensitivity [Unknown]
  - Injection site erythema [Unknown]

NARRATIVE: CASE EVENT DATE: 20240910
